FAERS Safety Report 6246261-8 (Version None)
Quarter: 2009Q2

REPORT INFORMATION
  Report Type: 
  Country: None (occurrence: None)
  Receive Date: 20090626
  Receipt Date: 20090619
  Transmission Date: 20091009
  Serious: Yes (Hospitalization)
  Sender: FDA-Public Use
  Company Number: JP-EISAI INC.-E2090-00748-SPO-JP

PATIENT
  Age: 4 Year
  Sex: Male

DRUGS (6)
  1. EXCEGRAN [Suspect]
     Indication: EPILEPSY
     Dosage: UNKNOWN
     Route: 065
  2. VALPROATE SODIUM [Suspect]
     Indication: EPILEPSY
     Dosage: UNKNOWN
     Route: 048
  3. CLOBAZAM [Suspect]
     Indication: EPILEPSY
     Dosage: UNKNOWN
     Route: 048
  4. ALEVIATIN [Suspect]
     Indication: EPILEPSY
     Dosage: DOSE GRADUALLY INCREASED
     Route: 065
     Dates: start: 20081001
  5. GABAPENTIN [Concomitant]
     Indication: EPILEPSY
     Dosage: UNKNOWN
     Route: 065
  6. CARBAMAZEPINE [Concomitant]
     Indication: EPILEPSY
     Dosage: UNKNOWN
     Route: 065

REACTIONS (1)
  - TOXIC EPIDERMAL NECROLYSIS [None]
